FAERS Safety Report 6163173-9 (Version None)
Quarter: 2009Q2

REPORT INFORMATION
  Report Type: 
  Country: None (occurrence: None)
  Receive Date: 20090420
  Receipt Date: 20090407
  Transmission Date: 20091009
  Serious: Yes (Hospitalization, Other)
  Sender: FDA-Public Use
  Company Number: 2009US0009

PATIENT
  Age: 4 Year
  Sex: Male

DRUGS (2)
  1. ORFADIN [Suspect]
     Indication: AMINO ACID METABOLISM DISORDER
     Dosage: 15 MG, ORAL
     Route: 048
     Dates: start: 20081007, end: 20090303
  2. ORFADIN [Suspect]
     Indication: TYROSINAEMIA
     Dosage: 15 MG, ORAL
     Route: 048
     Dates: start: 20081007, end: 20090303

REACTIONS (2)
  - HEPATOBLASTOMA [None]
  - LIVER TRANSPLANT [None]
